FAERS Safety Report 14396300 (Version 1)
Quarter: 2018Q1

REPORT INFORMATION
  Report Type: Spontaneous
  Country: US (occurrence: US)
  Receive Date: 20180116
  Receipt Date: 20180116
  Transmission Date: 20180509
  Serious: No
  Sender: FDA-Public Use
  Company Number: US-ALLERGAN-1719633US

PATIENT

DRUGS (5)
  1. BOTOX [Suspect]
     Active Substance: ONABOTULINUMTOXINA
     Indication: SKIN WRINKLING
     Dosage: , SINGLE
     Route: 030
     Dates: start: 20170222, end: 20170222
  2. BOTOX [Suspect]
     Active Substance: ONABOTULINUMTOXINA
     Indication: SKIN WRINKLING
     Dosage: , SINGLE
     Route: 030
     Dates: start: 20170222, end: 20170222
  3. BOTOX [Suspect]
     Active Substance: ONABOTULINUMTOXINA
     Indication: SKIN WRINKLING
     Route: 030
     Dates: start: 20170222, end: 20170222
  4. JUVEDERM [Concomitant]
     Active Substance: HYALURONIC ACID
     Dosage: , SINGLE
     Dates: start: 20170222, end: 20170222
  5. BOTOX [Suspect]
     Active Substance: ONABOTULINUMTOXINA
     Indication: SKIN WRINKLING
     Dosage: , SINGLE
     Route: 028
     Dates: start: 20170222, end: 20170222

REACTIONS (8)
  - Facial asymmetry [Not Recovered/Not Resolved]
  - Nerve injury [Not Recovered/Not Resolved]
  - Eye irritation [Not Recovered/Not Resolved]
  - Contusion [Not Recovered/Not Resolved]
  - Paraesthesia [Not Recovered/Not Resolved]
  - Eye disorder [Not Recovered/Not Resolved]
  - Tenderness [Not Recovered/Not Resolved]
  - Lacrimation increased [Not Recovered/Not Resolved]
